FAERS Safety Report 4876487-7 (Version None)
Quarter: 2005Q4

REPORT INFORMATION
  Report Type: 
  Country: None (occurrence: None)
  Receive Date: 20051206
  Receipt Date: 20051004
  Transmission Date: 20060501
  Serious: No
  Sender: FDA-Public Use
  Company Number: USA0510110178

PATIENT
  Age: 36 Year
  Sex: Male

DRUGS (1)
  1. CYMBALTA [Suspect]
     Indication: NEURALGIA
     Dosage: 60 MG

REACTIONS (3)
  - DERMATITIS ACNEIFORM [None]
  - HERPES SIMPLEX [None]
  - NIGHT SWEATS [None]
